FAERS Safety Report 6186781-8 (Version None)
Quarter: 2009Q2

REPORT INFORMATION
  Report Type: 
  Country: None (occurrence: None)
  Receive Date: 20090512
  Receipt Date: 20090428
  Transmission Date: 20091009
  Serious: Yes (Other)
  Sender: FDA-Public Use
  Company Number: CA-ROCHE-627443

PATIENT
  Sex: Female
  Weight: 95.3 kg

DRUGS (2)
  1. ACCUTANE [Suspect]
     Indication: ACNE
     Route: 048
     Dates: start: 20090324, end: 20090401
  2. ACCUTANE [Suspect]
     Dosage: DOSE INCREASED
     Route: 048
     Dates: start: 20090401

REACTIONS (4)
  - DRY SKIN [None]
  - INCREASED UPPER AIRWAY SECRETION [None]
  - LIP DRY [None]
  - NASAL DRYNESS [None]
